FAERS Safety Report 7468214-4 (Version None)
Quarter: 2011Q2

REPORT INFORMATION
  Report Type: 
  Country: None (occurrence: None)
  Receive Date: 20110509
  Receipt Date: 20110426
  Transmission Date: 20111010
  Serious: Yes (Death)
  Sender: FDA-Public Use
  Company Number: US-PURDUE-USA-2010-0049160

PATIENT
  Sex: Male

DRUGS (2)
  1. OXYCONTIN [Suspect]
     Indication: BONE SARCOMA
     Dosage: 1120 MG, Q8H
     Route: 048
     Dates: start: 20100101
  2. OXYCODONE HCL TABLETS (91-490) [Concomitant]
     Indication: BONE SARCOMA
     Dosage: 90 MG, Q1H

REACTIONS (2)
  - DRUG EFFECT DECREASED [None]
  - DEATH [None]
